FAERS Safety Report 7108485-7 (Version None)
Quarter: 2010Q4

REPORT INFORMATION
  Report Type: 
  Country: None (occurrence: None)
  Receive Date: 20101115
  Receipt Date: 20101115
  Transmission Date: 20110411
  Serious: Yes (Life-Threatening)
  Sender: FDA-Public Use
  Company Number: None

PATIENT
  Sex: Female
  Weight: 68.0396 kg

DRUGS (1)
  1. NUVIGIL [Suspect]
     Indication: EPSTEIN-BARR VIRUS INFECTION
     Dosage: 1/2 TAB OR 1 TAB 1 DAILEY

REACTIONS (10)
  - ABNORMAL BEHAVIOUR [None]
  - ANXIETY [None]
  - BRUXISM [None]
  - DYSPHONIA [None]
  - FATIGUE [None]
  - HEADACHE [None]
  - MOOD ALTERED [None]
  - MUSCLE TIGHTNESS [None]
  - SUICIDAL IDEATION [None]
  - TREMOR [None]
